FAERS Safety Report 4653127-3 (Version None)
Quarter: 2005Q2

REPORT INFORMATION
  Report Type: 
  Country: None (occurrence: None)
  Receive Date: 20050503
  Receipt Date: 20050425
  Transmission Date: 20051028
  Serious: Yes (Death)
  Sender: FDA-Public Use
  Company Number: SUS1-2005-00270

PATIENT
  Age: 20 Year
  Sex: Female
  Weight: 99.8 kg

DRUGS (4)
  1. ADDERALL XR 10 [Suspect]
     Indication: ATTENTION DEFICIT/HYPERACTIVITY DISORDER
     Dosage: 20-30 MG IN MORNING, UNK
     Dates: start: 20050124
  2. COCAINE(COCAINE) [Suspect]
     Dates: start: 20050305
  3. HEROIN(DIAMORPHINE) [Suspect]
     Dates: start: 20050305
  4. CELEXA [Concomitant]

REACTIONS (2)
  - DRUG ABUSER [None]
  - SUDDEN DEATH [None]
